FAERS Safety Report 12725569 (Version 1)
Quarter: 2016Q3

REPORT INFORMATION
  Report Type: Spontaneous
  Country: US (occurrence: US)
  Receive Date: 20160906
  Receipt Date: 20160906
  Transmission Date: 20161109
  Serious: Yes (Other)
  Sender: FDA-Public Use
  Company Number: None

PATIENT
  Age: 42 Year
  Sex: Male
  Weight: 62.55 kg

DRUGS (1)
  1. DUTASTERIDE .5 MG / DAY GENOLOSS / GENPHARMA [Suspect]
     Active Substance: DUTASTERIDE
     Indication: PROSTATOMEGALY
     Dosage: 1 CAPSULE DAILY ORAL
     Route: 048

REACTIONS (3)
  - Condition aggravated [None]
  - Dysuria [None]
  - Product substitution issue [None]

NARRATIVE: CASE EVENT DATE: 20160815
